FAERS Safety Report 7964467-4 (Version None)
Quarter: 2011Q4

REPORT INFORMATION
  Report Type: 
  Country: None (occurrence: None)
  Receive Date: 20111208
  Receipt Date: 20111128
  Transmission Date: 20120403
  Serious: Yes (Hospitalization)
  Sender: FDA-Public Use
  Company Number: US-BAYER-2011-055904

PATIENT
  Age: 45 Year
  Sex: Female
  Weight: 80 kg

DRUGS (7)
  1. YAZ [Suspect]
     Indication: ACNE
  2. TRAZODONE HCL [Concomitant]
     Dosage: 50 MG, UNK
     Dates: start: 20090331
  3. PROBIOTIC SUPPLEMENTS [Concomitant]
     Dosage: UNK
     Dates: start: 20090502
  4. RANITIDINE [Concomitant]
     Dosage: UNK
     Dates: start: 20080101, end: 20090701
  5. YAZ [Suspect]
     Indication: CONTRACEPTION
     Dosage: UNK
     Route: 048
     Dates: start: 20080701, end: 20090501
  6. CLINDAMYCIN PHOSPHATE [Concomitant]
     Dosage: UNK
     Route: 061
     Dates: start: 20090501
  7. CLONAZEPAM [Concomitant]
     Indication: UNEVALUABLE EVENT
     Dosage: 0.5 MG, UNK
     Dates: start: 20090403

REACTIONS (9)
  - DYSKINESIA [None]
  - ANXIETY [None]
  - MENTAL DISORDER [None]
  - DEEP VEIN THROMBOSIS [None]
  - PAIN [None]
  - GENERAL PHYSICAL HEALTH DETERIORATION [None]
  - PAIN IN EXTREMITY [None]
  - EMOTIONAL DISTRESS [None]
  - FATIGUE [None]
